FAERS Safety Report 9248946 (Version 1)
Quarter: 2013Q2

REPORT INFORMATION
  Report Type: Spontaneous
  Country: US (occurrence: None)
  Receive Date: 20130419
  Receipt Date: 20130419
  Transmission Date: 20140414
  Serious: Yes (Other)
  Sender: FDA-Public Use
  Company Number: None

PATIENT
  Age: 85 Year
  Sex: Female

DRUGS (9)
  1. REVLIMID [Suspect]
     Indication: PLASMA CELL MYELOMA
     Route: 048
     Dates: start: 201212, end: 201303
  2. HYDROCODONE/APAP [Concomitant]
  3. PROCHLORPERAZINE [Concomitant]
  4. SENNOSIDES [Concomitant]
  5. ONDANSETRON [Concomitant]
  6. FAMOTIDINE [Concomitant]
  7. LOSARTAN [Concomitant]
  8. LOVASTATIN [Concomitant]
  9. ATENOLOL [Concomitant]

REACTIONS (1)
  - Deep vein thrombosis [None]
